FAERS Safety Report 19361451 (Version 1)
Quarter: 2021Q2

REPORT INFORMATION
  Report Type: Spontaneous
  Country: US (occurrence: US)
  Receive Date: 20210603
  Receipt Date: 20210603
  Transmission Date: 20210717
  Serious: No
  Sender: FDA-Public Use
  Company Number: US-ROCHE-2762755

PATIENT
  Sex: Male
  Weight: 65.83 kg

DRUGS (3)
  1. DILTIAZEM. [Concomitant]
     Active Substance: DILTIAZEM
     Indication: OESOPHAGEAL SPASM
     Dosage: ONGOING: YES
     Route: 048
  2. OCREVUS [Suspect]
     Active Substance: OCRELIZUMAB
     Indication: SECONDARY PROGRESSIVE MULTIPLE SCLEROSIS
     Dosage: ONGOING : YES
     Route: 042
     Dates: start: 202002
  3. CARBAMAZEPINE. [Concomitant]
     Active Substance: CARBAMAZEPINE
     Indication: TRIGEMINAL NEURALGIA
     Dosage: 300 MG UP TO TWICE A DAY ; ONGOING : YES
     Route: 048

REACTIONS (1)
  - Mobility decreased [Not Recovered/Not Resolved]
